FAERS Safety Report 6202569-3 (Version None)
Quarter: 2009Q2

REPORT INFORMATION
  Report Type: 
  Country: None (occurrence: None)
  Receive Date: 20090526
  Receipt Date: 20090525
  Transmission Date: 20091009
  Serious: Yes (Other)
  Sender: FDA-Public Use
  Company Number: ES-BRISTOL-MYERS SQUIBB COMPANY-14636484

PATIENT
  Sex: Female

DRUGS (1)
  1. ORENCIA [Suspect]
     Indication: RHEUMATOID ARTHRITIS
     Dosage: STARTED 3MONTHS AGO; APPROXIMATELY AT A DOSE OF 10 MG/KG
     Route: 042
     Dates: start: 20090101

REACTIONS (1)
  - THROMBOCYTOPENIA [None]
